FAERS Safety Report 6148895-8 (Version None)
Quarter: 2009Q2

REPORT INFORMATION
  Report Type: 
  Country: None (occurrence: None)
  Receive Date: 20090408
  Receipt Date: 20090401
  Transmission Date: 20091009
  Serious: Yes (Other)
  Sender: FDA-Public Use
  Company Number: JP-ABBOTT-08P-087-0489998-00

PATIENT
  Age: 77 Year
  Sex: Female

DRUGS (19)
  1. CEFZON [Suspect]
     Indication: DRUG USE FOR UNKNOWN INDICATION
     Route: 048
     Dates: start: 20081021, end: 20081118
  2. MYSLEE [Concomitant]
     Indication: DRUG USE FOR UNKNOWN INDICATION
  3. AMLODIPINE [Concomitant]
     Indication: DRUG USE FOR UNKNOWN INDICATION
  4. EVISTA [Concomitant]
     Indication: DRUG USE FOR UNKNOWN INDICATION
  5. OPALMON [Concomitant]
     Indication: DRUG USE FOR UNKNOWN INDICATION
  6. TRICHLORMETHIAZIDE [Concomitant]
     Indication: DRUG USE FOR UNKNOWN INDICATION
  7. NEUROTROPIN [Concomitant]
     Indication: DRUG USE FOR UNKNOWN INDICATION
  8. NEUROVITAN [Concomitant]
     Indication: DRUG USE FOR UNKNOWN INDICATION
  9. NORPACE [Concomitant]
     Indication: DRUG USE FOR UNKNOWN INDICATION
  10. HALFDIGOXIN [Concomitant]
     Indication: DRUG USE FOR UNKNOWN INDICATION
  11. FAMOTIDIN [Concomitant]
     Indication: DRUG USE FOR UNKNOWN INDICATION
  12. PURSENNID [Concomitant]
     Indication: DRUG USE FOR UNKNOWN INDICATION
  13. PREDNISOLONE [Concomitant]
     Indication: DRUG USE FOR UNKNOWN INDICATION
  14. FLENIED [Concomitant]
     Indication: DRUG USE FOR UNKNOWN INDICATION
  15. VOLTAREN [Concomitant]
     Indication: DRUG USE FOR UNKNOWN INDICATION
  16. METHYCOOL [Concomitant]
     Indication: DRUG USE FOR UNKNOWN INDICATION
  17. MUCOSTA [Concomitant]
     Indication: DRUG USE FOR UNKNOWN INDICATION
  18. OMEPRAL [Concomitant]
     Indication: DRUG USE FOR UNKNOWN INDICATION
  19. ASPIRIN [Concomitant]
     Indication: DRUG USE FOR UNKNOWN INDICATION
     Dates: start: 20081114

REACTIONS (1)
  - AGRANULOCYTOSIS [None]
